FAERS Safety Report 6694496-2 (Version None)
Quarter: 2010Q2

REPORT INFORMATION
  Report Type: 
  Country: None (occurrence: None)
  Receive Date: 20100423
  Receipt Date: 20100413
  Transmission Date: 20101027
  Serious: Yes (Other)
  Sender: FDA-Public Use
  Company Number: GB-B.I. PHARMACEUTICALS,INC./RIDGEFIELD-2010-UK-00353UK

PATIENT
  Age: 78 Year
  Sex: Male

DRUGS (4)
  1. SPIRIVA [Suspect]
     Dosage: 18 MCG
  2. PREDNISOLONE [Suspect]
     Dosage: 5 MG ON ALT DAYS
  3. VENTOLIN [Concomitant]
     Dosage: 100 MCG PER DOSE AS NEEDED VIA EVOHALER
  4. SERETIDE ACCUHALER [Concomitant]
     Dosage: 500, 1 DOSE TWICE DAILY VIA ACCUHALER

REACTIONS (2)
  - DYSPNOEA [None]
  - PULMONARY FIBROSIS [None]
